FAERS Safety Report 6257881-9 (Version None)
Quarter: 2009Q3

REPORT INFORMATION
  Report Type: 
  Country: None (occurrence: None)
  Receive Date: 20090707
  Receipt Date: 20090625
  Transmission Date: 20100115
  Serious: Yes (Other)
  Sender: FDA-Public Use
  Company Number: US-RANBAXY-2009US-23790

PATIENT

DRUGS (4)
  1. ISOTRETINOIN [Suspect]
     Indication: DRUG USE FOR UNKNOWN INDICATION
     Dosage: 20 MG, UNK
     Route: 048
  2. ISOTRETINOIN [Suspect]
     Dosage: 30 MG, BID
     Route: 048
     Dates: start: 20081024, end: 20090417
  3. ISOTRETINOIN [Suspect]
     Dosage: 40 MG, UNK
     Route: 048
  4. ORAL CONTRACEPTIVE PILLS [Concomitant]
     Indication: CONTRACEPTION
     Dosage: UNK
     Route: 048

REACTIONS (2)
  - ABORTION SPONTANEOUS [None]
  - PREGNANCY [None]
